FAERS Safety Report 9300755 (Version 1)
Quarter: 2013Q2

REPORT INFORMATION
  Report Type: Spontaneous
  Country: JP (occurrence: JP)
  Receive Date: 20130521
  Receipt Date: 20130521
  Transmission Date: 20140414
  Serious: Yes (Other)
  Sender: FDA-Public Use
  Company Number: JP-009507513-1305JPN010456

PATIENT
  Sex: Female

DRUGS (1)
  1. MARVELON [Suspect]
     Dosage: UNK
     Route: 048

REACTIONS (3)
  - Drug effect incomplete [Unknown]
  - Unintended pregnancy [Unknown]
  - Maternal exposure during pregnancy [Unknown]
